FAERS Safety Report 9060907 (Version 1)
Quarter: 2013Q1

REPORT INFORMATION
  Report Type: Spontaneous
  Country: GB (occurrence: GB)
  Receive Date: 20130212
  Receipt Date: 20130212
  Transmission Date: 20140127
  Serious: Yes (Life-Threatening, Hospitalization)
  Sender: FDA-Public Use
  Company Number: GB-MYLANLABS-2013S1002404

PATIENT
  Age: 45 Year
  Sex: Female
  Weight: 40 kg

DRUGS (10)
  1. CITALOPRAM [Suspect]
     Indication: DEPRESSION
     Route: 048
  2. VENLAFAXINE [Suspect]
     Indication: DEPRESSION
     Route: 048
  3. CARBIMAZOLE [Suspect]
     Indication: HYPERTHYROIDISM
     Route: 048
  4. ASPIRIN [Concomitant]
     Indication: PRODUCT USED FOR UNKNOWN INDICATION
  5. DIAZEPAM [Concomitant]
     Indication: PRODUCT USED FOR UNKNOWN INDICATION
  6. PROPRANOLOL [Concomitant]
     Indication: PRODUCT USED FOR UNKNOWN INDICATION
  7. THIAMINE [Concomitant]
     Indication: PRODUCT USED FOR UNKNOWN INDICATION
  8. VITAMIN B COMPLEX /00003501/ [Concomitant]
     Indication: PRODUCT USED FOR UNKNOWN INDICATION
  9. THYROXINE SODIUM [Concomitant]
     Indication: PRODUCT USED FOR UNKNOWN INDICATION
  10. VITAMIN A + D /00404001/ [Concomitant]
     Indication: PRODUCT USED FOR UNKNOWN INDICATION

REACTIONS (1)
  - Neutropenic sepsis [Not Recovered/Not Resolved]
